FAERS Safety Report 16145994 (Version 1)
Quarter: 2019Q2

REPORT INFORMATION
  Report Type: Spontaneous
  Country: US (occurrence: US)
  Receive Date: 20190402
  Receipt Date: 20190402
  Transmission Date: 20190711
  Serious: No
  Sender: FDA-Public Use
  Company Number: US-BAYER-2019-064793

PATIENT
  Age: 65 Year
  Sex: Male
  Weight: 100 kg

DRUGS (6)
  1. TOCOPHEROL [Suspect]
     Active Substance: TOCOPHEROL
     Indication: PAIN
     Dosage: UNK
  2. TRAMADOL. [Concomitant]
     Active Substance: TRAMADOL
     Indication: PAIN
     Dosage: 50 MG, QD
  3. ALEVE [Suspect]
     Active Substance: NAPROXEN SODIUM
     Indication: PAIN
     Dosage: UNK, VARIES
     Route: 048
  4. MAGNESIUM CHLORIDE. [Suspect]
     Active Substance: MAGNESIUM CHLORIDE
     Indication: PAIN
     Dosage: UNK
  5. CALCIUM [Suspect]
     Active Substance: CALCIUM
     Indication: PAIN
     Dosage: UNK
  6. VITAMIN D3 [Suspect]
     Active Substance: CHOLECALCIFEROL
     Indication: PAIN
     Dosage: UNK

REACTIONS (5)
  - Drug ineffective [Unknown]
  - Product use issue [Unknown]
  - Product use in unapproved indication [Unknown]
  - Incorrect dose administered [Unknown]
  - Pain [Unknown]
